FAERS Safety Report 19830306 (Version 7)
Quarter: 2022Q1

REPORT INFORMATION
  Report Type: Report from Study
  Country: CN (occurrence: None)
  Receive Date: 20210915
  Receipt Date: 20220304
  Transmission Date: 20220424
  Serious: Yes (Hospitalization)
  Sender: FDA-Public Use
  Company Number: CN-ROCHE-2899101

PATIENT
  Age: 63 Year
  Sex: Female
  Weight: 58 kg

DRUGS (13)
  1. ATEZOLIZUMAB [Suspect]
     Active Substance: ATEZOLIZUMAB
     Indication: Non-small cell lung cancer stage IV
     Dosage: ON 18/AUG/2021, 6/DEC/2021 SHE RECEIVED MOST RECENT DOSE OF BLINDED ATEZOLIZUMAB WAS RECEIVED PRIOR
     Route: 041
     Dates: start: 20201125
  2. BEVACIZUMAB [Suspect]
     Active Substance: BEVACIZUMAB
     Indication: Non-small cell lung cancer stage IV
     Dosage: ON 28/JUL/2021,06/DEC/2021 SHE RECEIVED MOST RECENT DOSE OF BEVACIZUMAB (810 MG) PRIOR TO ONSET OF S
     Route: 042
     Dates: start: 20201125
  3. CARBOPLATIN [Suspect]
     Active Substance: CARBOPLATIN
     Indication: Non-small cell lung cancer stage IV
     Dosage: ON 29/JAN/2021, SHE RECEIVED MOST RECENT DOSE OF CARBOPLATIN (450 MG) PRIOR TO ONSET OF SERIOUS ADVE
     Route: 042
     Dates: start: 20201125
  4. PEMETREXED [Suspect]
     Active Substance: PEMETREXED
     Indication: Non-small cell lung cancer stage IV
     Dosage: ON 19/MAR/2021, SHE RECEIVED MOST RECENT DOSE OF PEMETREXED (760 MG) PRIOR TO ONSET OF SERIOUS ADVER
     Route: 042
     Dates: start: 20201125
  5. FOLIC ACID [Concomitant]
     Active Substance: FOLIC ACID
     Dates: start: 20201116
  6. OXYCODONE AND ACETAMINOPHEN [Concomitant]
     Active Substance: ACETAMINOPHEN\OXYCODONE HYDROCHLORIDE
     Indication: Pain
     Dates: start: 20200914
  7. MORPHINE SULFATE [Concomitant]
     Active Substance: MORPHINE SULFATE
     Indication: Pain
     Dates: start: 20200914
  8. GLYCERINE ENEMA [Concomitant]
     Dates: start: 202009
  9. MOXIFLOXACIN HYDROCHLORIDE [Concomitant]
     Active Substance: MOXIFLOXACIN HYDROCHLORIDE
     Indication: Urinary tract infection
     Dates: start: 20210105
  10. FUFANG BANLANGENG CHONGJI [Concomitant]
     Dates: start: 20210531
  11. IBANDRONATE SODIUM [Concomitant]
     Active Substance: IBANDRONATE SODIUM
     Indication: Metastases to bone
     Dates: start: 20210728, end: 20210728
  12. IBANDRONATE SODIUM [Concomitant]
     Active Substance: IBANDRONATE SODIUM
     Indication: Metastases to bone
     Dates: start: 20210818, end: 20210818
  13. IBANDRONATE SODIUM [Concomitant]
     Active Substance: IBANDRONATE SODIUM
     Dates: start: 20220127, end: 20220127

REACTIONS (1)
  - Nephritis [Recovering/Resolving]

NARRATIVE: CASE EVENT DATE: 20210825
